FAERS Safety Report 8335250-5 (Version None)
Quarter: 2012Q2

REPORT INFORMATION
  Report Type: 
  Country: None (occurrence: None)
  Receive Date: 20120503
  Receipt Date: 20120502
  Transmission Date: 20120825
  Serious: Yes (Other)
  Sender: FDA-Public Use
  Company Number: US-ROCHE-1044465

PATIENT
  Sex: Female

DRUGS (6)
  1. VALIUM [Concomitant]
  2. ZYRTEC [Concomitant]
  3. ZOLOFT [Concomitant]
     Dates: start: 20111217
  4. AMBIEN [Concomitant]
  5. BONIVA [Suspect]
     Indication: OSTEOPOROSIS
     Route: 048
     Dates: start: 20080101
  6. CALCIUM [Concomitant]

REACTIONS (8)
  - INFLAMMATORY BOWEL DISEASE [None]
  - COLITIS [None]
  - BRONCHITIS [None]
  - SINUSITIS [None]
  - RHINITIS [None]
  - FEMUR FRACTURE [None]
  - CELLULITIS [None]
  - LIPIDS INCREASED [None]
